FAERS Safety Report 6738887-X (Version None)
Quarter: 2010Q2

REPORT INFORMATION
  Report Type: 
  Country: None (occurrence: None)
  Receive Date: 20100521
  Receipt Date: 20100505
  Transmission Date: 20101027
  Serious: Yes (Hospitalization)
  Sender: FDA-Public Use
  Company Number: FKO201000179

PATIENT
  Age: 49 Year
  Sex: Female

DRUGS (6)
  1. DOXORUBICIN (MANUFACTURER UNKNOWN) [Suspect]
     Indication: MULTIPLE MYELOMA
  2. DEXAMETHASONE [Concomitant]
  3. VINCRISTINE [Concomitant]
  4. BISPHOSPHONATES (BISPHOSPHONATES) (BISPHOSPHONATES) [Concomitant]
  5. MORPHINE [Concomitant]
  6. FLUIDS (BARIUM SULFATE) (BARIUM SULFATE) [Concomitant]

REACTIONS (5)
  - ARTERIOSCLEROSIS [None]
  - CONSTIPATION [None]
  - INTESTINAL ISCHAEMIA [None]
  - INTESTINAL OBSTRUCTION [None]
  - MESENTERIC ARTERY THROMBOSIS [None]
